FAERS Safety Report 9570886 (Version 1)
Quarter: 2013Q1

REPORT INFORMATION
  Report Type: Spontaneous
  Country: US (occurrence: None)
  Receive Date: 20120913
  Receipt Date: 20120913
  Transmission Date: 20140127
  Serious: Yes (Other)
  Sender: FDA-Public Use
  Company Number: PHEH2011US01023

PATIENT
  Age: 57 Year
  Sex: Female

DRUGS (2)
  1. ZELNORM [Suspect]
  2. AMITIZA (LUBIPROSTONE) [Suspect]
     Dosage: 8 MG, BID

REACTIONS (2)
  - Depression [None]
  - Drug ineffective [None]
